FAERS Safety Report 10174698 (Version 2)
Quarter: 2015Q2

REPORT INFORMATION
  Report Type: Spontaneous
  Country: IT (occurrence: IT)
  Receive Date: 20140515
  Receipt Date: 20150520
  Transmission Date: 20150821
  Serious: Yes (Hospitalization)
  Sender: FDA-Public Use
  Company Number: IT-WATSON-2014-09670

PATIENT
  Age: 47 Year
  Sex: Female

DRUGS (2)
  1. TRIAZOLAM (UNKNOWN) [Suspect]
     Active Substance: TRIAZOLAM
     Indication: SUICIDE ATTEMPT
     Dosage: 2.5 MG, TOTAL
     Route: 048
     Dates: start: 20130930, end: 20130930
  2. LEXOTAN [Suspect]
     Active Substance: BROMAZEPAM
     Indication: SUICIDE ATTEMPT
     Dosage: 150 DROPS/TOTAL
     Route: 048
     Dates: start: 20130930, end: 20130930

REACTIONS (3)
  - Suicide attempt [Recovering/Resolving]
  - Drug abuse [Recovering/Resolving]
  - Somnolence [Recovering/Resolving]

NARRATIVE: CASE EVENT DATE: 20130930
